FAERS Safety Report 5274176-0 (Version None)
Quarter: 2007Q1

REPORT INFORMATION
  Report Type: 
  Country: None (occurrence: None)
  Receive Date: 20070323
  Receipt Date: 20070313
  Transmission Date: 20070707
  Serious: Yes (Life-Threatening)
  Sender: FDA-Public Use
  Company Number: FR-SANOFI-SYNTHELABO-A02200601186

PATIENT
  Age: 65 Year
  Sex: Female

DRUGS (6)
  1. KARDEGIC [Concomitant]
     Indication: STENT PLACEMENT
     Route: 048
     Dates: start: 20050722
  2. TRIATEC [Concomitant]
     Indication: HYPERTENSION
     Route: 048
     Dates: start: 20050723
  3. LASIX [Concomitant]
     Indication: HYPERTENSION
     Dosage: 80 MG
     Route: 048
     Dates: start: 20050722, end: 20050728
  4. CRESTOR [Concomitant]
     Indication: DYSLIPIDAEMIA
     Route: 048
     Dates: start: 20050721
  5. CARDENSIEL [Concomitant]
     Indication: HYPERTENSION
     Route: 048
     Dates: start: 20050722, end: 20050727
  6. PLAVIX [Suspect]
     Indication: STENT PLACEMENT
     Route: 048
     Dates: start: 20050722, end: 20050801

REACTIONS (2)
  - DRUG RESISTANCE [None]
  - STENT OCCLUSION [None]
